FAERS Safety Report 4783542-9 (Version None)
Quarter: 2005Q3

REPORT INFORMATION
  Report Type: 
  Country: None (occurrence: None)
  Receive Date: 20050928
  Receipt Date: 20050915
  Transmission Date: 20060218
  Serious: Yes (Death, Other)
  Sender: FDA-Public Use
  Company Number: EWC050945741

PATIENT
  Age: 51 Year
  Sex: Male

DRUGS (5)
  1. CYMBALTA [Suspect]
     Indication: ANXIETY
     Dosage: 60 MG/1 DAY
     Dates: start: 20050817
  2. CYMBALTA [Suspect]
     Indication: DEPRESSION
     Dosage: 60 MG/1 DAY
     Dates: start: 20050817
  3. ZYPREXA [Suspect]
     Indication: ANXIETY
     Dosage: 5 MG/1 DAY
     Route: 048
     Dates: start: 20050826
  4. ZYPREXA [Suspect]
     Indication: DEPRESSION
     Dosage: 5 MG/1 DAY
     Route: 048
     Dates: start: 20050826
  5. ZOPINOX            (ZOPICLONE) [Concomitant]

REACTIONS (10)
  - ANXIETY [None]
  - COMPLETED SUICIDE [None]
  - CONDITION AGGRAVATED [None]
  - GUN SHOT WOUND [None]
  - INSOMNIA [None]
  - JOB DISSATISFACTION [None]
  - MALAISE [None]
  - PARANOIA [None]
  - RESTLESSNESS [None]
  - SOCIAL PROBLEM [None]
